FAERS Safety Report 8111321-3 (Version None)
Quarter: 2012Q1

REPORT INFORMATION
  Report Type: 
  Country: None (occurrence: None)
  Receive Date: 20120203
  Receipt Date: 20110831
  Transmission Date: 20120608
  Serious: No
  Sender: FDA-Public Use
  Company Number: US-GLAXOSMITHKLINE-A0943007A

PATIENT
  Sex: Female

DRUGS (6)
  1. TRIAMTEREN + HYDROCHLOROTHIAZIDE [Concomitant]
  2. ESTRA-NORETH [Concomitant]
  3. KLONOPIN [Concomitant]
     Dosage: .5MG TWICE PER DAY
  4. CYMBALTA [Concomitant]
     Dosage: 60MG PER DAY
     Dates: end: 20110801
  5. LAMICTAL [Suspect]
     Indication: BIPOLAR DISORDER
     Route: 048
     Dates: start: 20110702
  6. UNSPECIFIED MEDICATION [Concomitant]

REACTIONS (1)
  - DYSPHONIA [None]
